FAERS Safety Report 23459045 (Version 2)
Quarter: 2024Q1

REPORT INFORMATION
  Report Type: Report from Study
  Country: MX (occurrence: MX)
  Receive Date: 20240131
  Receipt Date: 20240208
  Transmission Date: 20240409
  Serious: Yes (Other)
  Sender: FDA-Public Use
  Company Number: MX-AstraZeneca-2023A236399

PATIENT
  Age: 99 Day
  Sex: Female
  Weight: 6.6 kg

DRUGS (4)
  1. SYNAGIS [Suspect]
     Active Substance: PALIVIZUMAB
     Indication: Respiratory syncytial virus infection
     Dosage: 0.72 ML, MONTHLY
     Route: 030
     Dates: start: 20231012, end: 20231012
  2. SYNAGIS [Suspect]
     Active Substance: PALIVIZUMAB
     Dosage: 81.5 ML, MONTHLY
     Route: 030
     Dates: start: 20231109, end: 20231109
  3. SYNAGIS [Suspect]
     Active Substance: PALIVIZUMAB
     Dosage: 0.9 ML MONTHLY
     Route: 030
     Dates: start: 20231214, end: 20231214
  4. SYNAGIS [Suspect]
     Active Substance: PALIVIZUMAB
     Dosage: 1 ML MONTHLY
     Route: 030
     Dates: start: 20240111, end: 20240111

REACTIONS (11)
  - Dyspepsia [Recovered/Resolved]
  - Crying [Recovered/Resolved]
  - Pain [Recovered/Resolved]
  - Insomnia [Recovered/Resolved]
  - Influenza [Recovered/Resolved]
  - Vomiting [Recovered/Resolved]
  - Dyspnoea [Recovered/Resolved]
  - Cough [Recovered/Resolved]
  - Irritability [Recovered/Resolved]
  - Illness [Recovered/Resolved]
  - Discomfort [Recovered/Resolved]

NARRATIVE: CASE EVENT DATE: 20231012
